FAERS Safety Report 8399351-8 (Version None)
Quarter: 2012Q2

REPORT INFORMATION
  Report Type: 
  Country: None (occurrence: None)
  Receive Date: 20120531
  Receipt Date: 20120522
  Transmission Date: 20120825
  Serious: No
  Sender: FDA-Public Use
  Company Number: US-B.I. PHARMACEUTICALS,INC./RIDGEFIELD-2012-BP-11414BP

PATIENT

DRUGS (1)
  1. VIRAMUNE [Suspect]
     Indication: HIV CARRIER
     Dosage: 400 MG
     Route: 048
     Dates: end: 20120501

REACTIONS (3)
  - ANXIETY [None]
  - CONFUSIONAL STATE [None]
  - MENTAL DISORDER [None]
